FAERS Safety Report 8219932-1 (Version None)
Quarter: 2012Q1

REPORT INFORMATION
  Report Type: 
  Country: None (occurrence: None)
  Receive Date: 20120319
  Receipt Date: 20120314
  Transmission Date: 20120608
  Serious: Yes (Hospitalization)
  Sender: FDA-Public Use
  Company Number: US-PFIZER INC-2012009441

PATIENT
  Sex: Female

DRUGS (1)
  1. CHANTIX [Suspect]
     Indication: SMOKING CESSATION THERAPY
     Dosage: 0.5 MG/1 MG
     Dates: start: 20080101, end: 20080101

REACTIONS (6)
  - IRRITABILITY [None]
  - PALPITATIONS [None]
  - ABNORMAL BEHAVIOUR [None]
  - ANXIETY [None]
  - DIZZINESS [None]
  - DEPRESSION [None]
